FAERS Safety Report 5826547-9 (Version None)
Quarter: 2008Q3

REPORT INFORMATION
  Report Type: 
  Country: None (occurrence: None)
  Receive Date: 20080729
  Receipt Date: 20080722
  Transmission Date: 20090109
  Serious: Yes (Hospitalization)
  Sender: FDA-Public Use
  Company Number: US-ELI_LILLY_AND_COMPANY-US200807005097

PATIENT
  Sex: Female
  Weight: 104.31 kg

DRUGS (17)
  1. BYETTA [Suspect]
     Indication: TYPE 2 DIABETES MELLITUS
     Dosage: 5 UG, 2/D
     Route: 058
     Dates: start: 20070101, end: 20070101
  2. BYETTA [Suspect]
     Dosage: 10 UG, 2/D
     Route: 058
     Dates: start: 20070101
  3. METFORMIN HCL [Concomitant]
     Indication: TYPE 2 DIABETES MELLITUS
     Dosage: 1000 MG, 2/D
     Route: 048
  4. DURAGESIC-100 [Concomitant]
  5. FLEXERIL [Concomitant]
     Dosage: 10 MG, 3/D
     Route: 048
  6. ACIPHEX [Concomitant]
     Dosage: 20 MG, 2/D
     Route: 048
  7. PREMARIN [Concomitant]
     Dosage: 0.625 MG, DAILY (1/D)
     Route: 048
  8. LIPITOR [Concomitant]
     Dosage: 10 MG, DAILY (1/D)
     Route: 048
  9. PROCARDIA XL [Concomitant]
     Dosage: 30 MG, DAILY (1/D)
     Route: 048
  10. NEURONTIN [Concomitant]
     Dosage: 900 MG, 4/D
     Route: 048
  11. DIOVAN [Concomitant]
     Dosage: 160 MG, DAILY (1/D)
     Route: 048
  12. LEVOTHROID [Concomitant]
     Dosage: 0.125 MG, DAILY (1/D)
     Route: 048
  13. SEROQUEL [Concomitant]
     Dosage: 100 MG, DAILY (1/D)
     Route: 048
  14. SINGULAIR [Concomitant]
     Dosage: 10 MG, DAILY (1/D)
     Route: 048
  15. POTASSIUM CHLORIDE [Concomitant]
     Dosage: 10 MG, DAILY (1/D)
     Route: 048
  16. LASIX [Concomitant]
     Dosage: 20 MG, DAILY (1/D)
     Route: 048
  17. PROVENTIL /USA/ [Concomitant]
     Dosage: UNK, AS NEEDED

REACTIONS (5)
  - CAROTID ARTERY OCCLUSION [None]
  - CHEST PAIN [None]
  - CORONARY ARTERY OCCLUSION [None]
  - MYOCARDIAL INFARCTION [None]
  - SLEEP APNOEA SYNDROME [None]
